FAERS Safety Report 4309569-9 (Version None)
Quarter: 2004Q1

REPORT INFORMATION
  Report Type: 
  Country: None (occurrence: None)
  Receive Date: 20040301
  Receipt Date: 20040216
  Transmission Date: 20041129
  Serious: Yes (Hospitalization)
  Sender: FDA-Public Use
  Company Number: 04P-056-0246425-00

PATIENT
  Age: 28 Year
  Sex: Male
  Weight: 68 kg

DRUGS (4)
  1. KALETRA [Suspect]
     Indication: HIV INFECTION
     Dosage: 3 DOSAGE FORMS, 3 IN 1 D, PER ORAL
     Route: 048
     Dates: start: 20030506, end: 20031020
  2. FENOFIBRATE [Suspect]
     Dosage: 1 DOSAGE FORMS, 1 IN 1 D, PER ORAL
     Route: 048
     Dates: end: 20031020
  3. DIDANOSINE [Suspect]
     Indication: HIV INFECTION
     Dosage: 250 MG, PER ORAL
     Route: 048
     Dates: start: 20030506, end: 20031020
  4. TENOFOVIR [Suspect]
     Indication: HIV INFECTION
     Dosage: 1 DOSAGE FORMS, 1 IN 1 D
     Dates: start: 20020617, end: 20031020

REACTIONS (3)
  - HYPERHIDROSIS [None]
  - MALAISE [None]
  - RENAL FAILURE [None]
